FAERS Safety Report 5738431-X (Version None)
Quarter: 2008Q2

REPORT INFORMATION
  Report Type: 
  Country: None (occurrence: None)
  Receive Date: 20080513
  Receipt Date: 20080428
  Transmission Date: 20081010
  Serious: Yes (Other)
  Sender: FDA-Public Use
  Company Number: US-1165807

PATIENT
  Age: 56 Year
  Sex: Female

DRUGS (2)
  1. PROPARACAINE HYDROCHLORIDE [Suspect]
     Indication: EYE PAIN
     Dosage: 5-8 GTTS A DAY OPHTHALMIC
     Route: 047
     Dates: start: 20080207, end: 20080219
  2. TRIFLURIDINE [Concomitant]

REACTIONS (2)
  - CORNEAL SCAR [None]
  - VISUAL ACUITY REDUCED [None]
